FAERS Safety Report 9529429 (Version 1)
Quarter: 2013Q3

REPORT INFORMATION
  Report Type: Spontaneous
  Country: FR (occurrence: FR)
  Receive Date: 20130917
  Receipt Date: 20130917
  Transmission Date: 20140515
  Serious: Yes (Hospitalization, Other)
  Sender: FDA-Public Use
  Company Number: FR-PFIZER INC-2013263651

PATIENT
  Age: 80 Year
  Sex: Male

DRUGS (6)
  1. CADUET [Suspect]
     Dosage: 5 MG/ 10 MG DAILY
     Route: 048
  2. TRINIPATCH [Interacting]
     Dosage: 10 MG/24 HOURS 1X/DAY
     Route: 062
  3. COTAREG [Interacting]
     Dosage: 160 MG/25 MG DAILY
     Route: 048
  4. TEMESTA [Concomitant]
     Dosage: UNK
  5. PARACETAMOL [Concomitant]
     Dosage: UNK
  6. PLAVIX [Concomitant]
     Dosage: UNK

REACTIONS (5)
  - Drug interaction [Unknown]
  - Syncope [Unknown]
  - Malaise [Unknown]
  - Syncope [Unknown]
  - Loss of consciousness [Unknown]
